FAERS Safety Report 22136568 (Version 1)
Quarter: 2023Q1

REPORT INFORMATION
  Report Type: Report from Study
  Country: DE (occurrence: DE)
  Receive Date: 20230324
  Receipt Date: 20230324
  Transmission Date: 20230418
  Serious: Yes (Hospitalization, Other)
  Sender: FDA-Public Use
  Company Number: DE-BAXTER-2023BAX016340

PATIENT
  Age: 53 Year
  Sex: Female
  Weight: 63 kg

DRUGS (8)
  1. DOXORUBICIN [Suspect]
     Active Substance: DOXORUBICIN
     Dosage: 51 MG, CYCLE 1, D1, DOSAGE FORM: CONCENTRATE FOR SOLUTION FOR INFUSION
     Route: 065
     Dates: start: 20221212, end: 20221212
  2. DOXORUBICIN [Suspect]
     Active Substance: DOXORUBICIN
     Dosage: 52 MG, CYCLE 4, D14
     Route: 065
     Dates: start: 20230224, end: 20230224
  3. YONDELIS [Suspect]
     Active Substance: TRABECTEDIN
     Dosage: 1.85 MG, CYCLE 1 DAY 1
     Route: 065
     Dates: start: 20221212, end: 20221212
  4. YONDELIS [Suspect]
     Active Substance: TRABECTEDIN
     Dosage: 1.86 MG, CYCLE 4, D14, POWDER FOR CONCENTRATE FOR SOLUTION FOR INFUSION
     Route: 065
     Dates: start: 20230224, end: 20230224
  5. PANTOPRAZOLE [Concomitant]
     Active Substance: PANTOPRAZOLE
     Dosage: UNK
     Route: 065
  6. MESALAMINE [Concomitant]
     Active Substance: MESALAMINE
     Dosage: UNK
     Route: 065
  7. MIRTAZAPINE [Concomitant]
     Active Substance: MIRTAZAPINE
     Dosage: UNK
     Route: 065
  8. DIMENHYDRINATE [Concomitant]
     Active Substance: DIMENHYDRINATE
     Dosage: UNK
     Route: 065

REACTIONS (1)
  - Hepatic enzyme increased [Not Recovered/Not Resolved]

NARRATIVE: CASE EVENT DATE: 20230310
